FAERS Safety Report 15989407 (Version 1)
Quarter: 2019Q1

REPORT INFORMATION
  Report Type: Spontaneous
  Country: US (occurrence: US)
  Receive Date: 20190220
  Receipt Date: 20190220
  Transmission Date: 20190418
  Serious: Yes (Disabling)
  Sender: FDA-Public Use
  Company Number: None

PATIENT
  Age: 25 Year
  Sex: Male
  Weight: 83.25 kg

DRUGS (1)
  1. DULOXETINE DR 30MG CAPSULES [Suspect]
     Active Substance: DULOXETINE
     Indication: MAJOR DEPRESSION
     Dosage: ?          QUANTITY:1 CAPSULE(S);?
     Route: 048

REACTIONS (11)
  - Dizziness [None]
  - Mood swings [None]
  - Nausea [None]
  - Myalgia [None]
  - Negative thoughts [None]
  - Rhinorrhoea [None]
  - Diarrhoea [None]
  - Paraesthesia [None]
  - Abdominal pain [None]
  - Headache [None]
  - Product dose omission [None]

NARRATIVE: CASE EVENT DATE: 20190220
